FAERS Safety Report 8818044 (Version 6)
Quarter: 2013Q4

REPORT INFORMATION
  Report Type: Spontaneous
  Country: US (occurrence: US)
  Receive Date: 20121001
  Receipt Date: 20131028
  Transmission Date: 20140711
  Serious: Yes (Hospitalization, Other)
  Sender: FDA-Public Use
  Company Number: US-009507513-2012SP034991

PATIENT
  Sex: Female
  Weight: 65.76 kg

DRUGS (1)
  1. NUVARING [Suspect]
     Indication: CONTRACEPTION
     Dosage: UNK
     Route: 067
     Dates: start: 200911

REACTIONS (18)
  - Cardiomyopathy [Unknown]
  - Pulmonary embolism [Unknown]
  - Deep vein thrombosis [Recovered/Resolved]
  - Nasopharyngitis [Unknown]
  - Musculoskeletal discomfort [Unknown]
  - Back pain [Unknown]
  - Depression [Unknown]
  - Left ventricular failure [Unknown]
  - Speech disorder [Recovering/Resolving]
  - Epidural injection [Unknown]
  - Adverse drug reaction [Recovering/Resolving]
  - Speech disorder [Recovered/Resolved]
  - Cardiac failure congestive [Unknown]
  - Bipolar disorder [Unknown]
  - Upper respiratory tract infection [Unknown]
  - Dyspnoea [Unknown]
  - Chest pain [Unknown]
  - Diarrhoea [Unknown]
